FAERS Safety Report 4952452-6 (Version None)
Quarter: 2006Q1

REPORT INFORMATION
  Report Type: 
  Country: None (occurrence: None)
  Receive Date: 20060323
  Receipt Date: 20051013
  Transmission Date: 20060701
  Serious: Yes (Hospitalization)
  Sender: FDA-Public Use
  Company Number: PR-MERCK-0510USA07176

PATIENT
  Age: 76 Year
  Sex: Female
  Weight: 58 kg

DRUGS (7)
  1. VIOXX [Suspect]
     Indication: OSTEOARTHRITIS
     Route: 048
     Dates: start: 20010801, end: 20040501
  2. GLUCOVANCE [Concomitant]
     Route: 065
     Dates: start: 20040207
  3. GLUCOPHAGE [Concomitant]
     Indication: DIABETES MELLITUS
     Route: 065
     Dates: start: 19960314
  4. GLYNASE [Concomitant]
     Indication: DIABETES MELLITUS
     Route: 065
     Dates: start: 19960314
  5. PRAVACHOL [Concomitant]
     Indication: BLOOD CHOLESTEROL INCREASED
     Route: 065
     Dates: start: 19990711
  6. GLIPIZIDE [Concomitant]
     Indication: DIABETES MELLITUS
     Route: 065
     Dates: start: 19990924, end: 20010101
  7. BAYCOL [Concomitant]
     Indication: BLOOD CHOLESTEROL INCREASED
     Route: 065
     Dates: start: 19990206, end: 20010101

REACTIONS (15)
  - ACUTE CORONARY SYNDROME [None]
  - APPENDIX DISORDER [None]
  - ARTERIOSCLEROSIS CORONARY ARTERY [None]
  - BACTERIAL INFECTION [None]
  - CARDIAC DISORDER [None]
  - CHEST PAIN [None]
  - CORONARY ARTERY DISEASE [None]
  - COUGH [None]
  - DEMENTIA ALZHEIMER'S TYPE [None]
  - HYPERLIPIDAEMIA [None]
  - HYPERTENSION [None]
  - MYOCARDIAL INFARCTION [None]
  - OVERDOSE [None]
  - PERIPHERAL VASCULAR DISORDER [None]
  - RHINITIS ALLERGIC [None]
